FAERS Safety Report 4713363-4 (Version None)
Quarter: 2005Q3

REPORT INFORMATION
  Report Type: 
  Country: None (occurrence: None)
  Receive Date: 20050713
  Receipt Date: 20050307
  Transmission Date: 20060218
  Serious: Yes (Death)
  Sender: FDA-Public Use
  Company Number: PHFR2005GB01076

PATIENT
  Age: 29 Year
  Sex: Male
  Weight: 110 kg

DRUGS (2)
  1. CLOZARIL [Suspect]
     Indication: SCHIZOPHRENIA
     Dosage: 400MG/DAY
     Route: 048
     Dates: start: 19990614
  2. ALCOHOL [Suspect]

REACTIONS (2)
  - BLOOD ALCOHOL INCREASED [None]
  - DRUG LEVEL INCREASED [None]
